FAERS Safety Report 4446142-6 (Version None)
Quarter: 2004Q3

REPORT INFORMATION
  Report Type: 
  Country: None (occurrence: None)
  Receive Date: 20040907
  Receipt Date: 20040827
  Transmission Date: 20050211
  Serious: Yes (Hospitalization)
  Sender: FDA-Public Use
  Company Number: US-BRISTOL-MYERS SQUIBB COMPANY-12685368

PATIENT
  Age: 77 Year
  Sex: Female

DRUGS (7)
  1. PRAVASTATIN SODIUM [Suspect]
     Route: 048
  2. DIATX [Suspect]
     Route: 048
  3. LANSOPRAZOLE [Suspect]
     Route: 048
  4. PENTOXIFYLLINE [Suspect]
     Route: 048
  5. DIGITEK [Suspect]
  6. GLIPIZIDE [Concomitant]
     Route: 048
  7. TUMS [Concomitant]

REACTIONS (2)
  - HYPOPHOSPHATAEMIA [None]
  - LEUKOPENIA [None]
